FAERS Safety Report 9386101 (Version 1)
Quarter: 2013Q3

REPORT INFORMATION
  Report Type: Spontaneous
  Country: US (occurrence: US)
  Receive Date: 20130707
  Receipt Date: 20130707
  Transmission Date: 20140515
  Serious: No
  Sender: FDA-Public Use
  Company Number: US-009507513-1307USA001600

PATIENT
  Sex: 0

DRUGS (2)
  1. TEMODAR [Suspect]
     Indication: NEUROENDOCRINE TUMOUR
     Dosage: 150 OR 200 MG/M2 IN BID DOSING ON DAYS 10-14 OF EACH 28 DAY CYCLE
     Route: 048
  2. CAPECITABINE [Suspect]
     Indication: NEUROENDOCRINE TUMOUR
     Dosage: 1000 MG BID FOR 14 DAYS (OF EACH 28 DAY CYCLE)
     Route: 048

REACTIONS (1)
  - Palmar-plantar erythrodysaesthesia syndrome [Unknown]
